FAERS Safety Report 24265891 (Version 1)
Quarter: 2024Q3

REPORT INFORMATION
  Report Type: Spontaneous
  Country: US (occurrence: None)
  Receive Date: 20240830
  Receipt Date: 20240830
  Transmission Date: 20241016
  Serious: Yes (Hospitalization)
  Sender: AXSOME THERAPEUTICS
  Company Number: US-Axsome Therapeutics, Inc.-AXS202407-001018

PATIENT
  Age: 22 Year
  Sex: Male

DRUGS (2)
  1. AUVELITY [Suspect]
     Active Substance: BUPROPION HYDROCHLORIDE\DEXTROMETHORPHAN HYDROBROMIDE
     Indication: Major depression
     Route: 048
     Dates: start: 202402, end: 20240624
  2. AUVELITY [Suspect]
     Active Substance: BUPROPION HYDROCHLORIDE\DEXTROMETHORPHAN HYDROBROMIDE
     Indication: Borderline personality disorder
     Route: 048
     Dates: start: 20240716

REACTIONS (6)
  - Self-injurious ideation [Recovered/Resolved]
  - Loss of personal independence in daily activities [Recovered/Resolved]
  - Depression [Recovered/Resolved]
  - Symptom recurrence [Recovered/Resolved]
  - Therapy interrupted [Recovered/Resolved]
  - Insurance issue [Unknown]

NARRATIVE: CASE EVENT DATE: 20240601
